FAERS Safety Report 24288118 (Version 1)
Quarter: 2024Q3

REPORT INFORMATION
  Report Type: Other
  Country: US (occurrence: US)
  Receive Date: 20240905
  Receipt Date: 20240905
  Transmission Date: 20241016
  Serious: No
  Sender: MISSION
  Company Number: US-Mission Pharmacal Company-2161283

PATIENT
  Age: 58 Year
  Sex: Male

DRUGS (15)
  1. THIOLA EC [Suspect]
     Active Substance: TIOPRONIN
     Indication: Cystinuria
     Route: 048
     Dates: start: 20240829
  2. VITAMINS [Concomitant]
     Active Substance: VITAMINS
  3. THIOLA EC [Concomitant]
     Active Substance: TIOPRONIN
     Route: 048
     Dates: start: 20240829
  4. VALACYCLOVIR [Concomitant]
     Active Substance: VALACYCLOVIR HYDROCHLORIDE
  5. TYLENOL [Concomitant]
     Active Substance: ACETAMINOPHEN
  6. TAMSULOSIN [Concomitant]
     Active Substance: TAMSULOSIN
  7. SERTRALINE [Concomitant]
     Active Substance: SERTRALINE HYDROCHLORIDE
  8. OXYBUTYNIN. [Concomitant]
     Active Substance: OXYBUTYNIN CHLORIDE
  9. METHOCARBAMOL [Concomitant]
     Active Substance: METHOCARBAMOL
  10. MELOXICAM [Concomitant]
     Active Substance: MELOXICAM
  11. IRBESARTAN [Concomitant]
     Active Substance: IRBESARTAN
  12. INDAPAMIDE [Concomitant]
     Active Substance: INDAPAMIDE
  13. HYDROXYZINE [Concomitant]
     Active Substance: HYDROXYZINE HYDROCHLORIDE
  14. FENOFIBRATE [Concomitant]
     Active Substance: FENOFIBRATE
  15. EZETIMIBE [Concomitant]
     Active Substance: EZETIMIBE

REACTIONS (3)
  - Urine odour abnormal [Unknown]
  - Drug ineffective [Unknown]
  - Urine abnormality [Unknown]
